FAERS Safety Report 4519309-6 (Version None)
Quarter: 2004Q4

REPORT INFORMATION
  Report Type: 
  Country: None (occurrence: None)
  Receive Date: 20041206
  Receipt Date: 20041123
  Transmission Date: 20050328
  Serious: Yes (Hospitalization)
  Sender: FDA-Public Use
  Company Number: JP-GLAXOSMITHKLINE-B0357889A

PATIENT
  Age: 39 Year
  Sex: Male
  Weight: 98.9 kg

DRUGS (1)
  1. LAMIVUDINE [Suspect]
     Route: 065

REACTIONS (7)
  - DEPRESSED LEVEL OF CONSCIOUSNESS [None]
  - DRUG INEFFECTIVE [None]
  - HEPATIC FAILURE [None]
  - HEPATITIS B VIRUS [None]
  - JAUNDICE [None]
  - LETHARGY [None]
  - SOMNOLENCE [None]
